FAERS Safety Report 6755431-1 (Version None)
Quarter: 2010Q2

REPORT INFORMATION
  Report Type: 
  Country: None (occurrence: None)
  Receive Date: 20100604
  Receipt Date: 20100528
  Transmission Date: 20101027
  Serious: Yes (Hospitalization)
  Sender: FDA-Public Use
  Company Number: CA-RANBAXY-2010US-34107

PATIENT

DRUGS (1)
  1. MINOCYCLINE HYDROCHLORIDE [Suspect]
     Indication: ACNE
     Dosage: 100 MG/DAY
     Route: 065
     Dates: start: 20050101

REACTIONS (2)
  - DERMATOMYOSITIS [None]
  - DRUG INEFFECTIVE [None]
